FAERS Safety Report 10991215 (Version 8)
Quarter: 2018Q3

REPORT INFORMATION
  Report Type: Spontaneous
  Country: US (occurrence: US)
  Receive Date: 20150406
  Receipt Date: 20180719
  Transmission Date: 20181010
  Serious: Yes (Hospitalization, Other)
  Sender: FDA-Public Use
  Company Number: US-009507513-1504USA002286

PATIENT
  Sex: Female
  Weight: 179.14 kg

DRUGS (2)
  1. NUVARING [Suspect]
     Active Substance: ETHINYL ESTRADIOL\ETONOGESTREL
     Dosage: 1 DF, 0.12 MG, 0.015 MG/24HR 3 WEEKS IN, 1 WEEK OUT
     Route: 067
     Dates: start: 201302, end: 201404
  2. NUVARING [Suspect]
     Active Substance: ETHINYL ESTRADIOL\ETONOGESTREL
     Indication: CONTRACEPTION
     Dosage: 3 WEEKS IN PLACE, ONE WEEK OUT
     Route: 067
     Dates: start: 20060526

REACTIONS (34)
  - Injection site haematoma [Unknown]
  - Papilloma viral infection [Recovered/Resolved]
  - Vitamin B12 deficiency [Unknown]
  - Deep vein thrombosis [Recovered/Resolved]
  - Urinary incontinence [Unknown]
  - Oedema peripheral [Unknown]
  - Suicidal ideation [Unknown]
  - Sleep apnoea syndrome [Recovered/Resolved]
  - Rhinitis allergic [Unknown]
  - Pain in extremity [Unknown]
  - Pulmonary embolism [Unknown]
  - Anticoagulation drug level below therapeutic [Recovered/Resolved]
  - Depression [Unknown]
  - Gastrointestinal disorder [Unknown]
  - Anaemia folate deficiency [Unknown]
  - Hyperglycaemia [Unknown]
  - Asthma [Unknown]
  - Chest pain [Unknown]
  - Eczema [Unknown]
  - Vitamin B12 decreased [Unknown]
  - Post inflammatory pigmentation change [Unknown]
  - Vitamin D deficiency [Unknown]
  - Diaphragmatic disorder [Unknown]
  - Fibrin D dimer increased [Unknown]
  - Depression [Unknown]
  - Back pain [Unknown]
  - Menorrhagia [Unknown]
  - Chest pain [Unknown]
  - Hypoaesthesia [Unknown]
  - Affective disorder [Unknown]
  - Iron deficiency anaemia [Unknown]
  - Post-traumatic stress disorder [Unknown]
  - Iron deficiency [Unknown]
  - Swelling [Unknown]

NARRATIVE: CASE EVENT DATE: 200608
